FAERS Safety Report 23087517 (Version 1)
Quarter: 2023Q4

REPORT INFORMATION
  Report Type: Spontaneous
  Country: FR (occurrence: FR)
  Receive Date: 20231020
  Receipt Date: 20231020
  Transmission Date: 20240110
  Serious: Yes (Hospitalization)
  Sender: FDA-Public Use
  Company Number: None

PATIENT
  Age: 62 Year
  Sex: Female
  Weight: 60 kg

DRUGS (13)
  1. VALGANCICLOVIR [Suspect]
     Active Substance: VALGANCICLOVIR
     Indication: Antiviral prophylaxis
     Dosage: DAILY DOSE: 900 MILLIGRAM
     Route: 048
     Dates: start: 20220427
  2. VALGANCICLOVIR [Suspect]
     Active Substance: VALGANCICLOVIR
     Indication: Cytomegalovirus infection reactivation
     Dosage: DAILY DOSE: 900 MILLIGRAM
     Route: 048
     Dates: start: 20220427
  3. VALGANCICLOVIR [Suspect]
     Active Substance: VALGANCICLOVIR
     Indication: Antiviral prophylaxis
     Dosage: DAILY DOSE: 1800 MILLIGRAM
     Route: 048
     Dates: start: 202303
  4. VALGANCICLOVIR [Suspect]
     Active Substance: VALGANCICLOVIR
     Indication: Cytomegalovirus infection reactivation
     Dosage: DAILY DOSE: 1800 MILLIGRAM
     Route: 048
     Dates: start: 202303
  5. VALGANCICLOVIR [Suspect]
     Active Substance: VALGANCICLOVIR
     Indication: Antiviral prophylaxis
     Dosage: DAILY DOSE: 900 MILLIGRAM
     Route: 048
     Dates: start: 20230626
  6. VALGANCICLOVIR [Suspect]
     Active Substance: VALGANCICLOVIR
     Indication: Cytomegalovirus infection reactivation
     Dosage: DAILY DOSE: 900 MILLIGRAM
     Route: 048
     Dates: start: 20230626
  7. VALGANCICLOVIR [Suspect]
     Active Substance: VALGANCICLOVIR
     Indication: Antiviral prophylaxis
     Dosage: DAILY DOSE: 1800 MILLIGRAM
     Route: 048
     Dates: start: 20230819, end: 20230822
  8. VALGANCICLOVIR [Suspect]
     Active Substance: VALGANCICLOVIR
     Indication: Cytomegalovirus infection reactivation
     Dosage: DAILY DOSE: 1800 MILLIGRAM
     Route: 048
     Dates: start: 20230819, end: 20230822
  9. VALGANCICLOVIR [Suspect]
     Active Substance: VALGANCICLOVIR
     Indication: Antiviral prophylaxis
     Dosage: DAILY DOSE: 450 MILLIGRAM
     Route: 048
     Dates: start: 20230921
  10. VALGANCICLOVIR [Suspect]
     Active Substance: VALGANCICLOVIR
     Indication: Cytomegalovirus infection reactivation
     Dosage: DAILY DOSE: 450 MILLIGRAM
     Route: 048
     Dates: start: 20230921
  11. CELLCEPT [Suspect]
     Active Substance: MYCOPHENOLATE MOFETIL
     Indication: Prophylaxis against transplant rejection
     Dosage: MORNING AND EVENING?DAILY DOSE: 2000 MILLIGRAM
     Route: 048
     Dates: start: 20220427
  12. TACROLIMUS [Suspect]
     Active Substance: TACROLIMUS
     Indication: Prophylaxis against transplant rejection
     Dosage: 2/D?DAILY DOSE: 2 MILLIGRAM
     Route: 048
     Dates: start: 20220424, end: 20230819
  13. BACTRIM [Suspect]
     Active Substance: SULFAMETHOXAZOLE\TRIMETHOPRIM
     Indication: Antibiotic prophylaxis
     Dosage: 1 MONDAY, 1 WEDNESDAY, 1 FRIDAY/X3/WEEK
     Route: 048
     Dates: start: 20220506

REACTIONS (4)
  - Renal impairment [Unknown]
  - Neutropenia [Recovered/Resolved]
  - Tracheobronchitis [Unknown]
  - Off label use [Recovered/Resolved]

NARRATIVE: CASE EVENT DATE: 20220427
